FAERS Safety Report 8453621-3 (Version None)
Quarter: 2012Q2

REPORT INFORMATION
  Report Type: 
  Country: None (occurrence: None)
  Receive Date: 20120620
  Receipt Date: 20120613
  Transmission Date: 20120825
  Serious: Yes (Hospitalization, Disabling)
  Sender: FDA-Public Use
  Company Number: US-MERCK-0809USA00723

PATIENT
  Age: 51 Year
  Sex: Female
  Weight: 40 kg

DRUGS (4)
  1. FOSAMAX [Suspect]
     Route: 048
     Dates: start: 19980529
  2. FOSAMAX [Suspect]
     Route: 048
     Dates: end: 20080801
  3. FOSAMAX [Suspect]
     Indication: OSTEOPENIA
     Route: 048
     Dates: start: 19990101, end: 20080801
  4. LIPITOR [Concomitant]
     Route: 065

REACTIONS (22)
  - VITAMIN D DEFICIENCY [None]
  - TOOTH DISORDER [None]
  - FATIGUE [None]
  - FACIAL BONES FRACTURE [None]
  - ADVERSE EVENT [None]
  - UPPER LIMB FRACTURE [None]
  - ROAD TRAFFIC ACCIDENT [None]
  - DEFORMITY OF ORBIT [None]
  - FEMUR FRACTURE [None]
  - GINGIVAL DISORDER [None]
  - ASTHENIA [None]
  - OSTEOPOROSIS [None]
  - ANXIETY [None]
  - OSTEOARTHRITIS [None]
  - GAIT DISTURBANCE [None]
  - FALL [None]
  - HYPERCHOLESTEROLAEMIA [None]
  - DYSPAREUNIA [None]
  - SUBARACHNOID HAEMORRHAGE [None]
  - INAPPROPRIATE SCHEDULE OF DRUG ADMINISTRATION [None]
  - HEADACHE [None]
  - DENTAL CARIES [None]
